FAERS Safety Report 9581058 (Version 1)
Quarter: 2013Q4

REPORT INFORMATION
  Report Type: Spontaneous
  Country: US (occurrence: US)
  Receive Date: 20131002
  Receipt Date: 20131002
  Transmission Date: 20140711
  Serious: Yes (Death, Hospitalization, Other)
  Sender: FDA-Public Use
  Company Number: US-B.I. PHARMACEUTICALS,INC./RIDGEFIELD-2013-BI-30605GD

PATIENT
  Age: 78 Year
  Sex: Female
  Weight: 193 kg

DRUGS (2)
  1. PRADAXA [Suspect]
     Indication: ATRIAL FIBRILLATION
     Dosage: 300 MG
  2. ASASANTIN RETARD [Suspect]

REACTIONS (9)
  - Catheter site haemorrhage [Fatal]
  - Pharyngeal haemorrhage [Fatal]
  - Cardiac arrest [Fatal]
  - Sinus bradycardia [Unknown]
  - Acute myocardial infarction [Unknown]
  - Dehydration [Unknown]
  - Renal failure acute [Unknown]
  - Lower gastrointestinal haemorrhage [Unknown]
  - Anaemia [Unknown]
